FAERS Safety Report 15360096 (Version 1)
Quarter: 2018Q3

REPORT INFORMATION
  Report Type: Spontaneous
  Country: US (occurrence: US)
  Receive Date: 20180830
  Receipt Date: 20180830
  Transmission Date: 20181010
  Serious: Yes (Hospitalization)
  Sender: FDA-Public Use
  Company Number: None

PATIENT
  Age: 69 Year
  Sex: Female
  Weight: 45.4 kg

DRUGS (2)
  1. ERBITUX [Suspect]
     Active Substance: CETUXIMAB
     Dates: end: 20180803
  2. CAMPTOSAR [Suspect]
     Active Substance: IRINOTECAN HYDROCHLORIDE
     Dates: end: 20180803

REACTIONS (6)
  - Cancer pain [None]
  - Nausea [None]
  - Pyrexia [None]
  - Diarrhoea [None]
  - Chills [None]
  - Drug effect decreased [None]

NARRATIVE: CASE EVENT DATE: 20180825
